APPROVED DRUG PRODUCT: ONDANSETRON HYDROCHLORIDE
Active Ingredient: ONDANSETRON HYDROCHLORIDE
Strength: EQ 4MG BASE
Dosage Form/Route: TABLET;ORAL
Application: A077729 | Product #001
Applicant: TARO PHARMACEUTICAL INDUSTRIES LTD
Approved: Mar 28, 2011 | RLD: No | RS: No | Type: DISCN